FAERS Safety Report 13518481 (Version 1)
Quarter: 2017Q2

REPORT INFORMATION
  Report Type: Spontaneous
  Country: US (occurrence: US)
  Receive Date: 20170505
  Receipt Date: 20170505
  Transmission Date: 20170830
  Serious: No
  Sender: FDA-Public Use
  Company Number: GXBR2017US001249

PATIENT
  Sex: Female
  Weight: 63.49 kg

DRUGS (1)
  1. NEO AND POLY B SULFATES + HYDROCORTISONE [Suspect]
     Active Substance: BACITRACIN\NEOMYCIN\POLYMYXIN B
     Indication: CONJUNCTIVITIS
     Dosage: 1 OR 2 GTT IN AFFFECT EYE, Q3H TO Q4H
     Route: 047
     Dates: start: 20170324

REACTIONS (1)
  - Drug ineffective [Not Recovered/Not Resolved]
